FAERS Safety Report 24093586 (Version 1)
Quarter: 2024Q3

REPORT INFORMATION
  Report Type: Report from Study
  Country: GB (occurrence: GB)
  Receive Date: 20240715
  Receipt Date: 20240715
  Transmission Date: 20241017
  Serious: Yes (Hospitalization)
  Sender: SANDOZ
  Company Number: GB-002147023-NVSC2021GB128784

PATIENT
  Age: 57 Year
  Sex: Female

DRUGS (3)
  1. OMNITROPE [Suspect]
     Active Substance: SOMATROPIN
     Indication: Growth hormone deficiency
     Dosage: 0.3 MG, QD
     Route: 058
     Dates: start: 20170830
  2. OMNITROPE [Suspect]
     Active Substance: SOMATROPIN
     Indication: Hypopituitarism
     Dosage: 0.3 MG, QD
     Route: 058
     Dates: start: 20170830
  3. OMNITROPE [Suspect]
     Active Substance: SOMATROPIN
     Dosage: 0.30 MG, QD
     Route: 058

REACTIONS (4)
  - Hospitalisation [Unknown]
  - Mobility decreased [Unknown]
  - Product dose omission issue [Unknown]
  - Incorrect dose administered by device [Unknown]

NARRATIVE: CASE EVENT DATE: 20210605
